FAERS Safety Report 4679608-4 (Version None)
Quarter: 2005Q2

REPORT INFORMATION
  Report Type: 
  Country: None (occurrence: None)
  Receive Date: 20050602
  Receipt Date: 20050421
  Transmission Date: 20051028
  Serious: Yes (Hospitalization)
  Sender: FDA-Public Use
  Company Number: JP-BOEHRINGER INGELHEIM PHARMACEUTICALS, INC.-2005-BP-07358NB

PATIENT
  Age: 52 Year
  Sex: Male

DRUGS (3)
  1. MICARDIS [Suspect]
     Indication: HYPERTENSION
     Route: 048
     Dates: start: 20050214, end: 20050419
  2. BAYASPIRIN [Concomitant]
     Route: 048
  3. MARZULENE S [Concomitant]
     Route: 048

REACTIONS (1)
  - SHOCK [None]
